FAERS Safety Report 13883868 (Version 1)
Quarter: 2017Q3

REPORT INFORMATION
  Report Type: Spontaneous
  Country: US (occurrence: US)
  Receive Date: 20170818
  Receipt Date: 20170818
  Transmission Date: 20171127
  Serious: Yes (Life-Threatening, Hospitalization, Other)
  Sender: FDA-Public Use
  Company Number: None

PATIENT
  Age: 68 Year
  Sex: Female
  Weight: 76 kg

DRUGS (2)
  1. DHEA/PREGNENOLONE [Suspect]
     Active Substance: PRASTERONE\PREGNENOLONE
  2. C-PROGESTERONE [Suspect]
     Active Substance: PROGESTERONE

REACTIONS (5)
  - Pulseless electrical activity [None]
  - Hypotension [None]
  - Pulse absent [None]
  - Ventricular tachycardia [None]
  - Pulmonary embolism [None]

NARRATIVE: CASE EVENT DATE: 20170814
